FAERS Safety Report 11458790 (Version 3)
Quarter: 2019Q4

REPORT INFORMATION
  Report Type: Report from Study
  Country: CO (occurrence: CO)
  Receive Date: 20150904
  Receipt Date: 20191223
  Transmission Date: 20200122
  Serious: Yes (Death, Hospitalization)
  Sender: FDA-Public Use
  Company Number: CO-TEVA-585596USA

PATIENT
  Age: 57 Year
  Sex: Female
  Weight: 67 kg

DRUGS (1)
  1. RIBOMUSTIN [Suspect]
     Active Substance: BENDAMUSTINE HYDROCHLORIDE
     Indication: PLASMA CELL MYELOMA
     Dosage: 100 MG, CYCLIC (EVERY 1 MONTH)
     Route: 042
     Dates: start: 20150605, end: 20150731

REACTIONS (10)
  - Dyspnoea [Unknown]
  - Asthenia [Not Recovered/Not Resolved]
  - Myalgia [Not Recovered/Not Resolved]
  - Haemoglobin decreased [Not Recovered/Not Resolved]
  - Death [Fatal]
  - Jaundice [Not Recovered/Not Resolved]
  - Speech disorder [Not Recovered/Not Resolved]
  - Mucosal dryness [Unknown]
  - Hypokinesia [Unknown]
  - Muscular weakness [Not Recovered/Not Resolved]

NARRATIVE: CASE EVENT DATE: 20150729
